FAERS Safety Report 9293018 (Version 1)
Quarter: 2013Q2

REPORT INFORMATION
  Report Type: Spontaneous
  Country: US (occurrence: None)
  Receive Date: 20130515
  Receipt Date: 20130515
  Transmission Date: 20140414
  Serious: Yes (Other)
  Sender: FDA-Public Use
  Company Number: None

PATIENT
  Age: 24 Year
  Sex: Female
  Weight: 68.04 kg

DRUGS (1)
  1. VIIBRYD [Suspect]
     Indication: ANTIDEPRESSANT THERAPY
     Dosage: 7-10 MG -7-20MG-16-40MG
     Route: 048
     Dates: start: 20130501, end: 20130513

REACTIONS (9)
  - Insomnia [None]
  - Feeling abnormal [None]
  - Abdominal pain upper [None]
  - Confusional state [None]
  - Swelling face [None]
  - Eye swelling [None]
  - Mania [None]
  - Crying [None]
  - Screaming [None]
